FAERS Safety Report 12898396 (Version 2)
Quarter: 2016Q4

REPORT INFORMATION
  Report Type: Report from Study
  Country: CA (occurrence: CA)
  Receive Date: 20161031
  Receipt Date: 20161116
  Transmission Date: 20170207
  Serious: Yes (Other)
  Sender: FDA-Public Use
  Company Number: CA-HLSUS-2016-CA-000416

PATIENT
  Age: 68 Year
  Sex: Male
  Weight: 53.98 kg

DRUGS (1)
  1. CLOZARIL [Suspect]
     Active Substance: CLOZAPINE
     Dosage: TWICE A DAY
     Route: 048
     Dates: start: 20120817

REACTIONS (5)
  - Hypotension [Unknown]
  - Fatigue [Unknown]
  - Schizophrenia [Unknown]
  - Fall [Unknown]
  - Constipation [Unknown]

NARRATIVE: CASE EVENT DATE: 20160825
